FAERS Safety Report 17976314 (Version 1)
Quarter: 2020Q3

REPORT INFORMATION
  Report Type: Spontaneous
  Country: US (occurrence: US)
  Receive Date: 20200703
  Receipt Date: 20200703
  Transmission Date: 20201103
  Serious: Yes (Other)
  Sender: FDA-Public Use
  Company Number: US-STRIDES ARCOLAB LIMITED-2019SP013529

PATIENT
  Age: 68 Year
  Sex: Female

DRUGS (4)
  1. VITAMIN B12 [Concomitant]
     Active Substance: CYANOCOBALAMIN
     Indication: PRODUCT USED FOR UNKNOWN INDICATION
     Dosage: UNK, THREE TIMES A WEEK
     Route: 065
  2. MELOXICAM. [Suspect]
     Active Substance: MELOXICAM
     Indication: ROTATOR CUFF SYNDROME
     Dosage: 15 MILLIGRAM, QD
     Route: 048
     Dates: start: 20190507
  3. MELOXICAM. [Suspect]
     Active Substance: MELOXICAM
     Indication: INFLAMMATION
     Dosage: 15 MILLIGRAM, QD
     Route: 048
     Dates: start: 20190517, end: 20190517
  4. CALTRATE                           /00944201/ [Concomitant]
     Active Substance: CALCIUM CARBONATE\CHOLECALCIFEROL
     Indication: PRODUCT USED FOR UNKNOWN INDICATION
     Dosage: UNK, THREE TIMES A WEEK
     Route: 065

REACTIONS (12)
  - Abdominal discomfort [Recovered/Resolved]
  - Aphthous ulcer [Recovered/Resolved]
  - Limb discomfort [Recovered/Resolved]
  - Abdominal distension [Recovered/Resolved]
  - Feeling abnormal [Recovered/Resolved]
  - Gastrointestinal disorder [Recovered/Resolved]
  - Hypertension [Not Recovered/Not Resolved]
  - Weight increased [Recovered/Resolved]
  - Peripheral swelling [Recovered/Resolved]
  - Flatulence [Recovered/Resolved]
  - Joint swelling [Recovered/Resolved]
  - Intentional dose omission [Unknown]

NARRATIVE: CASE EVENT DATE: 201905
